FAERS Safety Report 7313584-0 (Version None)
Quarter: 2011Q1

REPORT INFORMATION
  Report Type: 
  Country: None (occurrence: None)
  Receive Date: 20110225
  Receipt Date: 20110215
  Transmission Date: 20110831
  Serious: Yes (Death, Life-Threatening)
  Sender: FDA-Public Use
  Company Number: ES-JNJFOC-20110107803

PATIENT
  Age: 45 Year
  Sex: Male
  Weight: 75 kg

DRUGS (10)
  1. REMICADE [Suspect]
     Indication: INFLAMMATORY BOWEL DISEASE
     Route: 042
  2. REMICADE [Suspect]
     Route: 042
  3. AZATHIOPRINE [Concomitant]
     Indication: POUCHITIS
     Route: 048
  4. REMICADE [Suspect]
     Indication: POUCHITIS
     Route: 042
  5. REMICADE [Suspect]
     Route: 042
  6. REMICADE [Suspect]
     Route: 042
  7. CODEINE [Concomitant]
     Indication: POUCHITIS
     Route: 048
  8. CIPROFLOXACIN [Concomitant]
     Indication: POUCHITIS
     Route: 048
  9. REMICADE [Suspect]
     Route: 042
  10. LOPERAMIDE [Concomitant]
     Indication: POUCHITIS
     Route: 048

REACTIONS (1)
  - COMPLETED SUICIDE [None]
